FAERS Safety Report 16907769 (Version 1)
Quarter: 2019Q4

REPORT INFORMATION
  Report Type: Spontaneous
  Country: US (occurrence: US)
  Receive Date: 20190820
  Receipt Date: 20190820
  Transmission Date: 20200122
  Serious: Yes (Death)
  Sender: FDA-Public Use
  Company Number: None

PATIENT
  Sex: Female
  Weight: 71.3 kg

DRUGS (1)
  1. NUVIGIL [Suspect]
     Active Substance: ARMODAFINIL
     Dates: end: 20180802

REACTIONS (7)
  - Somnolence [None]
  - Muscular weakness [None]
  - Malignant neoplasm progression [None]
  - Dysphagia [None]
  - General physical health deterioration [None]
  - Anaplastic astrocytoma [None]
  - Therapy cessation [None]

NARRATIVE: CASE EVENT DATE: 20180802
